FAERS Safety Report 25413766 (Version 1)
Quarter: 2025Q2

REPORT INFORMATION
  Report Type: Spontaneous
  Country: US (occurrence: None)
  Receive Date: 20250607
  Receipt Date: 20250607
  Transmission Date: 20250716
  Serious: Yes (Hospitalization, Disabling, Other)
  Sender: FDA-CTU
  Company Number: None

PATIENT
  Age: 29 Year
  Sex: Female
  Weight: 51.75 kg

DRUGS (1)
  1. FLUVOXAMINE [Suspect]
     Active Substance: FLUVOXAMINE

REACTIONS (11)
  - Product communication issue [None]
  - Drug withdrawal syndrome [None]
  - Iatrogenic injury [None]
  - Brain injury [None]
  - Drug rechallenge positive [None]
  - Cognitive disorder [None]
  - Brain fog [None]
  - Akathisia [None]
  - Insomnia [None]
  - Blunted affect [None]
  - Visual impairment [None]

NARRATIVE: CASE EVENT DATE: 20230411
